FAERS Safety Report 16628814 (Version 1)
Quarter: 2019Q3

REPORT INFORMATION
  Report Type: Spontaneous
  Country: IT (occurrence: IT)
  Receive Date: 20190725
  Receipt Date: 20190725
  Transmission Date: 20191004
  Serious: Yes (Life-Threatening, Hospitalization, Other)
  Sender: FDA-Public Use
  Company Number: IT-ELI_LILLY_AND_COMPANY-IT201907010733

PATIENT
  Age: 58 Year
  Sex: Male
  Weight: 90 kg

DRUGS (3)
  1. OLANZAPINE. [Suspect]
     Active Substance: OLANZAPINE
     Indication: FEELING JITTERY
     Dosage: 5 MG, DAILY
     Route: 048
     Dates: start: 20190621, end: 20190703
  2. AMIKACIN. [Concomitant]
     Active Substance: AMIKACIN
     Indication: SEPSIS
  3. CEFEPIME [Suspect]
     Active Substance: CEFEPIME HYDROCHLORIDE
     Indication: SEPSIS
     Route: 042
     Dates: start: 20190626, end: 20190701

REACTIONS (5)
  - Sepsis [Unknown]
  - Off label use [Unknown]
  - Myocardial infarction [Unknown]
  - Leukopenia [Recovered/Resolved]
  - Cardiac arrest [Unknown]

NARRATIVE: CASE EVENT DATE: 20190628
